FAERS Safety Report 6500351-0 (Version None)
Quarter: 2009Q4

REPORT INFORMATION
  Report Type: 
  Country: None (occurrence: None)
  Receive Date: 20091127
  Receipt Date: 20090422
  Transmission Date: 20100525
  Serious: Yes (Other)
  Sender: FDA-Public Use
  Company Number: WAES 0703USA04947

PATIENT
  Age: 59 Year
  Sex: Female

DRUGS (4)
  1. FOSAMAX [Suspect]
     Indication: OSTEOPOROSIS
     Dosage: 70 MG/WKY/PO
     Route: 048
     Dates: start: 20011116, end: 20060223
  2. SYNTHROID [Concomitant]
  3. ZESTORETIC [Concomitant]
  4. TAMOXIFEN CITRATE [Concomitant]

REACTIONS (10)
  - ANXIETY [None]
  - BACK DISORDER [None]
  - BURSITIS [None]
  - DEPRESSION [None]
  - HOT FLUSH [None]
  - INTERVERTEBRAL DISC PROTRUSION [None]
  - OSTEOMYELITIS [None]
  - OSTEONECROSIS [None]
  - SLEEP DISORDER [None]
  - VULVOVAGINAL CANDIDIASIS [None]
